FAERS Safety Report 21556482 (Version 1)
Quarter: 2022Q4

REPORT INFORMATION
  Report Type: Spontaneous
  Country: US (occurrence: US)
  Receive Date: 20221104
  Receipt Date: 20221104
  Transmission Date: 20230112
  Serious: No
  Sender: FDA-Public Use
  Company Number: US-TEVA-2022-US-2821628

PATIENT
  Age: 68 Year
  Sex: Female

DRUGS (2)
  1. ESTRACE [Suspect]
     Active Substance: ESTRADIOL
     Indication: Menopausal symptoms
     Route: 065
     Dates: start: 1994
  2. ESTRACE [Suspect]
     Active Substance: ESTRADIOL
     Indication: Bone loss
     Dosage: .75 MILLIGRAM DAILY; ONE AND ONE HALF TABS
     Route: 065

REACTIONS (3)
  - Drug ineffective [Unknown]
  - Hypertrichosis [Unknown]
  - Emotional disorder [Unknown]

NARRATIVE: CASE EVENT DATE: 20220101
